FAERS Safety Report 6864032-6 (Version None)
Quarter: 2010Q3

REPORT INFORMATION
  Report Type: 
  Country: None (occurrence: None)
  Receive Date: 20100721
  Receipt Date: 20080416
  Transmission Date: 20110219
  Serious: No
  Sender: FDA-Public Use
  Company Number: US-PFIZER INC-2008023708

PATIENT
  Sex: Male
  Weight: 63.5 kg

DRUGS (6)
  1. CHANTIX [Suspect]
     Indication: SMOKING CESSATION THERAPY
     Dates: start: 20080301
  2. ACETYLSALICYLIC ACID [Interacting]
  3. ACETYLSALICYLIC ACID [Interacting]
  4. NEXIUM [Concomitant]
     Indication: GASTRITIS
  5. CALTRATE [Concomitant]
  6. CENTRUM [Concomitant]

REACTIONS (2)
  - DRUG INTERACTION [None]
  - NAUSEA [None]
